FAERS Safety Report 25313830 (Version 1)
Quarter: 2025Q2

REPORT INFORMATION
  Report Type: Spontaneous
  Country: US (occurrence: None)
  Receive Date: 20250513
  Receipt Date: 20250513
  Transmission Date: 20250717
  Serious: Yes (Other)
  Sender: FDA-CTU
  Company Number: None

PATIENT
  Age: 10 Year
  Sex: Male
  Weight: 26.1 kg

DRUGS (1)
  1. XEMBIFY [Suspect]
     Active Substance: HUMAN IMMUNOGLOBULIN G
     Indication: Immunodeficiency
     Dosage: OTHER FREQUENCY : WEEKLY;?
     Route: 058

REACTIONS (3)
  - Injection site swelling [None]
  - Injection site erythema [None]
  - Product quality issue [None]

NARRATIVE: CASE EVENT DATE: 20250501
